FAERS Safety Report 4845067-1 (Version None)
Quarter: 2005Q4

REPORT INFORMATION
  Report Type: 
  Country: None (occurrence: None)
  Receive Date: 20051205
  Receipt Date: 20051129
  Transmission Date: 20060501
  Serious: Yes (Hospitalization, Disabling)
  Sender: FDA-Public Use
  Company Number: DE-MERCK-0511DEU00188

PATIENT
  Age: 47 Year
  Sex: Male

DRUGS (2)
  1. VIOXX [Suspect]
     Indication: PAIN
     Route: 048
     Dates: start: 20000101, end: 20040101
  2. VIOXX [Suspect]
     Indication: OSTEOARTHRITIS
     Route: 048
     Dates: start: 20000101, end: 20040101

REACTIONS (5)
  - ADJUSTMENT DISORDER [None]
  - APHTHOUS STOMATITIS [None]
  - IDIOPATHIC THROMBOCYTOPENIC PURPURA [None]
  - SLEEP DISORDER [None]
  - TINNITUS [None]
